FAERS Safety Report 8727958 (Version 2)
Quarter: 2012Q4

REPORT INFORMATION
  Report Type: 
  Country: US (occurrence: US)
  Receive Date: 20120816
  Receipt Date: 20121002
  Transmission Date: 20130627
  Serious: Yes (Other)
  Sender: FDA-Public Use
  Company Number: CHPA2012US017860

PATIENT
  Age: 65 None
  Sex: Female
  Weight: 72.11 kg

DRUGS (6)
  1. BENEFIBER W/ WHEAT DEXTRIN [Suspect]
     Indication: CONSTIPATION
     Dosage: 4.5 TSP, QD
     Route: 048
     Dates: start: 201201
  2. BENEFIBER W/ WHEAT DEXTRIN [Suspect]
     Dosage: 2 TSP, QD
     Route: 048
  3. BENEFIBER SUGAR FREE [Suspect]
     Dosage: Unk, Unk
  4. BENTYLOL [Concomitant]
     Indication: IRRITABLE BOWEL SYNDROME
     Dosage: UNK, PRN
  5. ORENCIA [Concomitant]
     Indication: RHEUMATOID ARTHRITIS
     Dosage: UNK, UNK
  6. FLECAINIDE [Concomitant]
     Indication: ATRIAL FIBRILLATION
     Dosage: 100 mg, BID
     Route: 048
     Dates: start: 2009

REACTIONS (4)
  - Breast cancer [Recovered/Resolved]
  - Abdominal pain upper [Recovered/Resolved]
  - Off label use [Unknown]
  - Incorrect dose administered [Unknown]
